FAERS Safety Report 16633737 (Version 1)
Quarter: 2019Q3

REPORT INFORMATION
  Report Type: Spontaneous
  Country: US (occurrence: US)
  Receive Date: 20190725
  Receipt Date: 20190725
  Transmission Date: 20191004
  Serious: No
  Sender: FDA-Public Use
  Company Number: US-DERMIRA, INC.-US-2019DER000346

PATIENT
  Age: 13 Year
  Sex: Male
  Weight: 93.88 kg

DRUGS (6)
  1. SARECYCLINE. [Concomitant]
     Active Substance: SARECYCLINE
     Indication: ACNE
     Dosage: 100 MG, QD
     Route: 048
     Dates: start: 20190508
  2. DUOFORTE [Concomitant]
     Indication: ACNE
     Dosage: UNK, QD
     Route: 061
     Dates: start: 20190508
  3. PULMICORT TURBUHALER [Concomitant]
     Active Substance: BUDESONIDE
     Indication: EOSINOPHILIC OESOPHAGITIS
     Dosage: 2 MG, BID
     Route: 048
  4. QBREXZA [Suspect]
     Active Substance: GLYCOPYRRONIUM TOSYLATE
     Indication: HYPERHIDROSIS
     Dosage: UNK, QD
     Route: 061
     Dates: start: 201905
  5. OMEPRAZOLE. [Concomitant]
     Active Substance: OMEPRAZOLE
     Indication: GASTROOESOPHAGEAL REFLUX DISEASE
     Dosage: 40 MG, QD
     Route: 048
  6. FLONASE                            /00908302/ [Concomitant]
     Active Substance: MOMETASONE FUROATE
     Indication: EOSINOPHILIC OESOPHAGITIS
     Dosage: 2 PUFFS EACH NOSTRIL, QD
     Route: 061
     Dates: start: 201812

REACTIONS (2)
  - Arthralgia [Unknown]
  - Barbiturates positive [Not Recovered/Not Resolved]

NARRATIVE: CASE EVENT DATE: 201905
